FAERS Safety Report 9023383 (Version 3)
Quarter: 2013Q2

REPORT INFORMATION
  Report Type: Spontaneous
  Country: US (occurrence: US)
  Receive Date: 20130121
  Receipt Date: 20130401
  Transmission Date: 20140414
  Serious: Yes (Hospitalization)
  Sender: FDA-Public Use
  Company Number: US-B.I. PHARMACEUTICALS,INC./RIDGEFIELD-2012-BP-25370BP

PATIENT
  Age: 76 Year
  Sex: Male
  Weight: 99.79 kg

DRUGS (7)
  1. PRADAXA [Suspect]
     Indication: ATRIAL FIBRILLATION
     Dosage: 300 MG
     Dates: start: 20120123, end: 20120220
  2. SOTALOL [Concomitant]
     Dates: start: 200904
  3. OMEPRAZOLE [Concomitant]
  4. LEVOTHYROXINE [Concomitant]
  5. LISINOPRIL [Concomitant]
  6. AMIODARONE [Concomitant]
  7. CARVEDILOL [Concomitant]

REACTIONS (5)
  - Respiratory failure [Unknown]
  - Gastrointestinal haemorrhage [Unknown]
  - Rectal haemorrhage [Unknown]
  - Haemorrhage [Unknown]
  - Epistaxis [Unknown]
